FAERS Safety Report 23736094 (Version 1)
Quarter: 2024Q2

REPORT INFORMATION
  Report Type: Spontaneous
  Country: CA (occurrence: None)
  Receive Date: 20240412
  Receipt Date: 20240412
  Transmission Date: 20240716
  Serious: Yes (Death)
  Sender: FDA-Public Use
  Company Number: 2024A084590

PATIENT
  Age: 79 Year
  Sex: Female

DRUGS (1)
  1. ROSUVASTATIN [Suspect]
     Active Substance: ROSUVASTATIN

REACTIONS (4)
  - Acute kidney injury [Fatal]
  - Myalgia [Fatal]
  - Myositis [Fatal]
  - Rhabdomyolysis [Fatal]
